FAERS Safety Report 7291135-7 (Version None)
Quarter: 2011Q1

REPORT INFORMATION
  Report Type: 
  Country: None (occurrence: None)
  Receive Date: 20110214
  Receipt Date: 20110209
  Transmission Date: 20110831
  Serious: Yes (Hospitalization)
  Sender: FDA-Public Use
  Company Number: US-ABBOTT-10P-163-0689401-00

PATIENT
  Sex: Female

DRUGS (1)
  1. HUMIRA [Suspect]
     Indication: CROHN'S DISEASE
     Dates: start: 20100901

REACTIONS (12)
  - RENAL FAILURE ACUTE [None]
  - LETHARGY [None]
  - VOMITING [None]
  - HYPOAESTHESIA [None]
  - INJECTION SITE ERYTHEMA [None]
  - NAUSEA [None]
  - DECREASED APPETITE [None]
  - ANAPHYLACTIC REACTION [None]
  - PARAESTHESIA [None]
  - HEADACHE [None]
  - INJECTION SITE INDURATION [None]
  - ASTHENIA [None]
